FAERS Safety Report 4443807-7 (Version None)
Quarter: 2004Q3

REPORT INFORMATION
  Report Type: 
  Country: None (occurrence: None)
  Receive Date: 20040729
  Receipt Date: 20031201
  Transmission Date: 20050211
  Serious: Yes (Death)
  Sender: FDA-Public Use
  Company Number: USA-2003-0012038

PATIENT
  Age: 42 Year
  Sex: Female
  Weight: 95.2 kg

DRUGS (4)
  1. MS CONTIN [Suspect]
     Indication: PAIN
     Dates: start: 20030124
  2. GABAPENTIN [Suspect]
  3. CITALOPRAM [Suspect]
  4. PROMETHAZINE [Suspect]

REACTIONS (3)
  - ACCIDENTAL OVERDOSE [None]
  - LOSS OF CONSCIOUSNESS [None]
  - SNORING [None]
